FAERS Safety Report 23819666 (Version 1)
Quarter: 2024Q2

REPORT INFORMATION
  Report Type: Spontaneous
  Country: US (occurrence: US)
  Receive Date: 20240506
  Receipt Date: 20240506
  Transmission Date: 20240716
  Serious: No
  Sender: FDA-Public Use
  Company Number: US-GSKCCFUS-Case-01997080_AE-110877

PATIENT
  Sex: Female

DRUGS (2)
  1. LAMICTAL [Suspect]
     Active Substance: LAMOTRIGINE
     Indication: Schizoaffective disorder
     Dosage: 50 MG (FOR 2 WEEKS)
  2. LAMICTAL [Suspect]
     Active Substance: LAMOTRIGINE
     Dosage: 100 MG (FOR 2 WEEKS)

REACTIONS (2)
  - Rash [Not Recovered/Not Resolved]
  - Post inflammatory pigmentation change [Not Recovered/Not Resolved]
